FAERS Safety Report 6055460-X (Version None)
Quarter: 2009Q1

REPORT INFORMATION
  Report Type: 
  Country: None (occurrence: None)
  Receive Date: 20090128
  Receipt Date: 20090116
  Transmission Date: 20090719
  Serious: Yes (Life-Threatening, Hospitalization, Disabling)
  Sender: FDA-Public Use
  Company Number: GB-AVENTIS-200910606GDDC

PATIENT
  Age: 61 Year
  Sex: Male

DRUGS (2)
  1. MINIRIN [Suspect]
     Indication: PROPHYLAXIS
     Route: 042
     Dates: start: 20081028, end: 20081028
  2. IMMUNOSUPPRESSIVE AGENTS [Concomitant]
     Indication: IMMUNOSUPPRESSION

REACTIONS (1)
  - ACUTE MYOCARDIAL INFARCTION [None]
